FAERS Safety Report 9871086 (Version 1)
Quarter: 2014Q1

REPORT INFORMATION
  Report Type: Spontaneous
  Country: US (occurrence: US)
  Receive Date: 20140205
  Receipt Date: 20140205
  Transmission Date: 20141002
  Serious: No
  Sender: FDA-Public Use
  Company Number: US-GILEAD-2013-0074611

PATIENT
  Age: 53 Year
  Sex: Male
  Weight: 77.98 kg

DRUGS (2)
  1. STRIBILD [Suspect]
     Indication: HIV INFECTION
  2. ATRIPLA [Concomitant]

REACTIONS (2)
  - Therapeutic response unexpected [Unknown]
  - Therapeutic response unexpected [Unknown]
